FAERS Safety Report 13745450 (Version 1)
Quarter: 2017Q3

REPORT INFORMATION
  Report Type: Spontaneous
  Country: US (occurrence: US)
  Receive Date: 20170711
  Receipt Date: 20170711
  Transmission Date: 20171127
  Serious: No
  Sender: FDA-Public Use
  Company Number: None

PATIENT
  Age: 69 Year
  Sex: Male

DRUGS (1)
  1. SENSIPAR [Suspect]
     Active Substance: CINACALCET HYDROCHLORIDE
     Route: 048
     Dates: start: 20170521, end: 20170602

REACTIONS (3)
  - Blood calcium decreased [None]
  - Therapy cessation [None]
  - Syncope [None]

NARRATIVE: CASE EVENT DATE: 20170531
